FAERS Safety Report 25179928 (Version 2)
Quarter: 2025Q3

REPORT INFORMATION
  Report Type: Report from Study
  Country: US (occurrence: US)
  Receive Date: 20250409
  Receipt Date: 20250803
  Transmission Date: 20251021
  Serious: Yes (Other)
  Sender: ALEXION PHARMACEUTICALS
  Company Number: US-AstraZeneca-CH-00841622A

PATIENT
  Sex: Female

DRUGS (2)
  1. FASENRA [Suspect]
     Active Substance: BENRALIZUMAB
     Route: 065
  2. ATENOLOL [Suspect]
     Active Substance: ATENOLOL
     Route: 065

REACTIONS (5)
  - Arrhythmia [Unknown]
  - Heart rate increased [Unknown]
  - Cough [Unknown]
  - Asthma [Unknown]
  - Chest pain [Unknown]
